FAERS Safety Report 17185935 (Version 2)
Quarter: 2020Q1

REPORT INFORMATION
  Report Type: Spontaneous
  Country: US (occurrence: US)
  Receive Date: 20191220
  Receipt Date: 20200130
  Transmission Date: 20200409
  Serious: No
  Sender: FDA-Public Use
  Company Number: US-PHARMING-PHAUS2019000675

PATIENT

DRUGS (1)
  1. RUCONEST [Suspect]
     Active Substance: HUMAN C1-ESTERASE INHIBITOR
     Indication: HEREDITARY ANGIOEDEMA
     Dosage: 2100 IU INTERNATIONAL UNIT(S)
     Route: 042
     Dates: start: 20190416

REACTIONS (4)
  - Feeling abnormal [Unknown]
  - Cough [Unknown]
  - Product availability issue [Unknown]
  - Speech disorder [Unknown]

NARRATIVE: CASE EVENT DATE: 20191202
